FAERS Safety Report 4316874-9 (Version None)
Quarter: 2004Q1

REPORT INFORMATION
  Report Type: 
  Country: None (occurrence: None)
  Receive Date: 20040309
  Receipt Date: 20030617
  Transmission Date: 20041129
  Serious: Yes (Hospitalization)
  Sender: FDA-Public Use
  Company Number: A03200301324

PATIENT
  Age: 61 Year
  Sex: Female
  Weight: 83.9154 kg

DRUGS (14)
  1. ELOXATIN [Suspect]
     Indication: COLON CANCER
     Dosage: 170 MG Q2W - INTRAVENOUS NOS
     Route: 042
     Dates: start: 20030616, end: 20030616
  2. ELOXATIN [Suspect]
     Indication: METASTASES TO LIVER
     Dosage: 170 MG Q2W - INTRAVENOUS NOS
     Route: 042
     Dates: start: 20030616, end: 20030616
  3. ELOXATIN [Suspect]
     Indication: METASTASES TO LUNG
     Dosage: 170 MG Q2W - INTRAVENOUS NOS
     Route: 042
     Dates: start: 20030616, end: 20030616
  4. FLUOROURACIL [Concomitant]
  5. LEUCOVORIN [Concomitant]
  6. THALIDOMIDE [Concomitant]
  7. APREPITANT [Concomitant]
  8. ESOMEPRAZOLE [Concomitant]
  9. BUPROPION HYDROCHLORIDE [Concomitant]
  10. PROCHLORPERAZINE EDISYLATE [Concomitant]
  11. LANSOPRAZOLE [Concomitant]
  12. OXYCODONE HCL [Concomitant]
  13. PROPXYPHENE/ACETAMINOPHEN [Concomitant]
  14. FILGRASTIM [Concomitant]

REACTIONS (3)
  - ANGIONEUROTIC OEDEMA [None]
  - SWELLING FACE [None]
  - SWOLLEN TONGUE [None]
